FAERS Safety Report 9034852 (Version 2)
Quarter: 2013Q2

REPORT INFORMATION
  Report Type: Spontaneous
  Country: BE (occurrence: BE)
  Receive Date: 20130128
  Receipt Date: 20130429
  Transmission Date: 20140414
  Serious: Yes (Life-Threatening, Hospitalization, Other)
  Sender: FDA-Public Use
  Company Number: BE-ASTRAZENECA-2013SE04792

PATIENT
  Age: 50 Year
  Sex: Male

DRUGS (4)
  1. BRILIQUE [Suspect]
     Indication: ANGINA UNSTABLE
     Dosage: UPLOADED WITH 180 MG 24 HOURS UPFRONT THE SURGERY
     Route: 048
     Dates: start: 201301
  2. BRILIQUE [Suspect]
     Indication: ANGINA UNSTABLE
     Route: 048
     Dates: start: 201301
  3. ASPIRINE [Concomitant]
  4. CLEXANE [Concomitant]

REACTIONS (1)
  - Haemorrhage [Recovered/Resolved]
